FAERS Safety Report 17316662 (Version 2)
Quarter: 2020Q1

REPORT INFORMATION
  Report Type: Spontaneous
  Country: FR (occurrence: FR)
  Receive Date: 20200124
  Receipt Date: 20200205
  Transmission Date: 20200409
  Serious: Yes (Hospitalization, Congenital Anomaly, Other)
  Sender: FDA-Public Use
  Company Number: FR-MYLANLABS-2020M1007138

PATIENT
  Sex: Male

DRUGS (2)
  1. SPECIAFOLDINE [Concomitant]
     Active Substance: FOLIC ACID
     Dosage: UNK UNK, UNK
     Route: 064
  2. VALPROIC ACID. [Suspect]
     Active Substance: VALPROIC ACID
     Indication: EPILEPSY
     Dosage: 1000 MG, QD
     Route: 064
     Dates: start: 20050827, end: 20060524

REACTIONS (34)
  - Fine motor delay [Unknown]
  - Congenital musculoskeletal anomaly [Not Recovered/Not Resolved]
  - Learning disability [Not Recovered/Not Resolved]
  - Lordosis [Not Recovered/Not Resolved]
  - Supernumerary nipple [Not Recovered/Not Resolved]
  - Heterophoria [Unknown]
  - Muscle spasms [Unknown]
  - Ophthalmoplegia [Unknown]
  - Bronchitis [Unknown]
  - Anxiety [Unknown]
  - Amblyopia congenital [Unknown]
  - Behaviour disorder [Unknown]
  - Neonatal deafness [Unknown]
  - Dysmorphism [Unknown]
  - Agitation neonatal [Unknown]
  - Dysuria [Unknown]
  - Speech disorder developmental [Unknown]
  - Strabismus congenital [Unknown]
  - Myopia [Not Recovered/Not Resolved]
  - Cryptorchism [Recovered/Resolved]
  - Attention deficit/hyperactivity disorder [Not Recovered/Not Resolved]
  - Urinary tract infection [Unknown]
  - Kyphosis congenital [Not Recovered/Not Resolved]
  - Hyperhidrosis [Not Recovered/Not Resolved]
  - Foetal exposure during pregnancy [Recovered/Resolved]
  - Stereotypy [Unknown]
  - Congenital astigmatism [Unknown]
  - Pectus excavatum [Not Recovered/Not Resolved]
  - Impaired reasoning [Unknown]
  - Ear infection [Unknown]
  - Haematuria [Unknown]
  - Distractibility [Unknown]
  - Talipes [Not Recovered/Not Resolved]
  - Intellectual disability [Unknown]

NARRATIVE: CASE EVENT DATE: 2006
